FAERS Safety Report 7220766-5 (Version None)
Quarter: 2011Q1

REPORT INFORMATION
  Report Type: 
  Country: None (occurrence: None)
  Receive Date: 20110111
  Receipt Date: 20101230
  Transmission Date: 20110831
  Serious: Yes (Other)
  Sender: FDA-Public Use
  Company Number: US-AMGEN-USASP2010012466

PATIENT

DRUGS (1)
  1. ENBREL [Suspect]
     Indication: BACK PAIN
     Dosage: 50 MG, QWK
     Dates: start: 20101220

REACTIONS (1)
  - LOSS OF CONSCIOUSNESS [None]
